FAERS Safety Report 7362215-2 (Version None)
Quarter: 2011Q1

REPORT INFORMATION
  Report Type: 
  Country: None (occurrence: None)
  Receive Date: 20110318
  Receipt Date: 20110309
  Transmission Date: 20110831
  Serious: Yes (Other)
  Sender: FDA-Public Use
  Company Number: US-ROCHE-760224

PATIENT
  Sex: Female

DRUGS (1)
  1. BONIVA [Suspect]
     Route: 065

REACTIONS (3)
  - BONE PAIN [None]
  - PATHOLOGICAL FRACTURE [None]
  - MYALGIA [None]
